FAERS Safety Report 24584044 (Version 1)
Quarter: 2024Q4

REPORT INFORMATION
  Report Type: Spontaneous
  Country: US (occurrence: None)
  Receive Date: 20241105
  Receipt Date: 20241105
  Transmission Date: 20250115
  Serious: Yes (Other)
  Sender: Public
  Company Number: None

PATIENT
  Age: 65 Year
  Sex: Female

DRUGS (1)
  1. MOUNJARO [Suspect]
     Active Substance: TIRZEPATIDE
     Indication: Diabetes mellitus
     Route: 058
     Dates: start: 20231003

REACTIONS (8)
  - Parkinson^s disease [None]
  - Delusion [None]
  - Somnolence [None]
  - Agitation [None]
  - Paranoia [None]
  - Antipsychotic drug level below therapeutic [None]
  - Anticonvulsant drug level decreased [None]
  - Malabsorption [None]
